FAERS Safety Report 13060336 (Version 1)
Quarter: 2016Q4

REPORT INFORMATION
  Report Type: Spontaneous
  Country: IT (occurrence: IT)
  Receive Date: 20161223
  Receipt Date: 20161223
  Transmission Date: 20170207
  Serious: Yes (Disabling)
  Sender: FDA-Public Use
  Company Number: IT-SA-2016SA230717

PATIENT
  Age: 0 Day
  Sex: Female

DRUGS (4)
  1. CORTISONE [Suspect]
     Active Substance: CORTISONE\HYDROCORTISONE
     Indication: FOETAL EXPOSURE DURING PREGNANCY
     Route: 064
  2. SOLU-MEDROL [Suspect]
     Active Substance: METHYLPREDNISOLONE SODIUM SUCCINATE
     Indication: FOETAL EXPOSURE DURING PREGNANCY
     Route: 064
  3. LEMTRADA [Suspect]
     Active Substance: ALEMTUZUMAB
     Indication: FOETAL EXPOSURE DURING PREGNANCY
     Route: 064
     Dates: start: 20160118, end: 20160122
  4. CARDIOASPIRIN [Suspect]
     Active Substance: ASPIRIN
     Indication: FOETAL EXPOSURE DURING PREGNANCY
     Route: 064

REACTIONS (5)
  - Small for dates baby [Unknown]
  - Hypertonia [Unknown]
  - Microencephaly [Unknown]
  - Nervous system disorder [Unknown]
  - Congenital cytomegalovirus infection [Unknown]

NARRATIVE: CASE EVENT DATE: 2016
